FAERS Safety Report 9001815 (Version 1)
Quarter: 2013Q1

REPORT INFORMATION
  Report Type: Spontaneous
  Country: US (occurrence: US)
  Receive Date: 20130107
  Receipt Date: 20130107
  Transmission Date: 20140127
  Serious: Yes (Hospitalization)
  Sender: FDA-Public Use
  Company Number: US-GILEAD-2013-0067196

PATIENT
  Age: 64 Year
  Sex: Male

DRUGS (3)
  1. LETAIRIS [Suspect]
     Indication: COR PULMONALE CHRONIC
     Dosage: 5 MG, QD
     Route: 048
     Dates: start: 20110315
  2. LOSARTAN [Concomitant]
  3. PAXIL [Concomitant]

REACTIONS (1)
  - Pulmonary embolism [Recovered/Resolved]
